FAERS Safety Report 5896009-1 (Version None)
Quarter: 2008Q3

REPORT INFORMATION
  Report Type: 
  Country: None (occurrence: None)
  Receive Date: 20080924
  Receipt Date: 20080916
  Transmission Date: 20090109
  Serious: Yes (Hospitalization)
  Sender: FDA-Public Use
  Company Number: FR-ABBOTT-08P-056-0476800-00

PATIENT
  Age: 75 Year
  Sex: Male

DRUGS (4)
  1. ENANTONE LP 11.25 MG PREP [Suspect]
     Indication: PROSTATE CANCER
     Route: 050
     Dates: start: 20060901, end: 20070101
  2. METFORMIN HCL [Concomitant]
     Indication: TYPE 2 DIABETES MELLITUS
  3. ALLOPURINOL [Concomitant]
     Indication: DRUG USE FOR UNKNOWN INDICATION
  4. BISOPROLOL FUMARATE [Concomitant]
     Indication: DRUG USE FOR UNKNOWN INDICATION

REACTIONS (4)
  - FATIGUE [None]
  - GAIT DISTURBANCE [None]
  - JOINT STIFFNESS [None]
  - ORGANIC ERECTILE DYSFUNCTION [None]
